FAERS Safety Report 6482816-3 (Version None)
Quarter: 2009Q4

REPORT INFORMATION
  Report Type: 
  Country: None (occurrence: None)
  Receive Date: 20091209
  Receipt Date: 20091130
  Transmission Date: 20100525
  Serious: Yes (Other)
  Sender: FDA-Public Use
  Company Number: SE-JNJFOC-20091102806

PATIENT
  Sex: Female

DRUGS (2)
  1. IPREN [Suspect]
     Indication: NASOPHARYNGITIS
     Dosage: DOSE UNSPECIFIED, ON 4 OCCASIONS
     Route: 048
  2. IBUMETIN [Suspect]
     Indication: NASOPHARYNGITIS
     Dosage: DOSE UNSPECIFIED, ON 4 OCCASIONS
     Route: 048

REACTIONS (4)
  - ABDOMINAL PAIN UPPER [None]
  - ABORTION SPONTANEOUS [None]
  - DRUG EXPOSURE DURING PREGNANCY [None]
  - NAUSEA [None]
